FAERS Safety Report 5634480-0 (Version None)
Quarter: 2008Q1

REPORT INFORMATION
  Report Type: 
  Country: None (occurrence: None)
  Receive Date: 20080220
  Receipt Date: 20080220
  Transmission Date: 20080703
  Serious: Yes (Other)
  Sender: FDA-Public Use
  Company Number: None

PATIENT
  Age: 10 Year
  Sex: Male
  Weight: 59.4212 kg

DRUGS (2)
  1. ABILIFY [Suspect]
     Indication: ABNORMAL BEHAVIOUR
     Dosage: 20 MG DAILY PO
     Route: 048
     Dates: start: 20070301, end: 20080101
  2. ABILIFY [Suspect]
     Indication: BIPOLAR DISORDER
     Dosage: 20 MG DAILY PO
     Route: 048
     Dates: start: 20070301, end: 20080101

REACTIONS (2)
  - AKATHISIA [None]
  - DRUG WITHDRAWAL SYNDROME [None]
